FAERS Safety Report 24084207 (Version 1)
Quarter: 2024Q3

REPORT INFORMATION
  Report Type: Spontaneous
  Country: AU (occurrence: AU)
  Receive Date: 20240712
  Receipt Date: 20240712
  Transmission Date: 20241016
  Serious: Yes (Other)
  Sender: SAMSUNG BIOEPIS
  Company Number: AU-SAMSUNG BIOEPIS-SB-2024-20527

PATIENT
  Age: 82 Year
  Sex: Female

DRUGS (2)
  1. ETANERCEPT [Suspect]
     Active Substance: ETANERCEPT
     Indication: Vasculitis
     Route: 065
  2. ETANERCEPT [Suspect]
     Active Substance: ETANERCEPT
     Indication: Arthritis

REACTIONS (5)
  - Brain injury [Unknown]
  - Loss of consciousness [Unknown]
  - Device issue [Unknown]
  - Incorrect dose administered [Unknown]
  - Off label use [Unknown]
